FAERS Safety Report 12508609 (Version 1)
Quarter: 2016Q2

REPORT INFORMATION
  Report Type: Spontaneous
  Country: GB (occurrence: GB)
  Receive Date: 20160629
  Receipt Date: 20160629
  Transmission Date: 20160815
  Serious: Yes (Other)
  Sender: FDA-Public Use
  Company Number: GB-TEVA-670411ACC

PATIENT
  Age: 58 Year
  Sex: Male
  Weight: 96 kg

DRUGS (4)
  1. SIMVASTATIN. [Suspect]
     Active Substance: SIMVASTATIN
     Indication: BLOOD CHOLESTEROL INCREASED
     Route: 048
     Dates: end: 201411
  2. ATORVASTATIN [Suspect]
     Active Substance: ATORVASTATIN
     Indication: BLOOD CHOLESTEROL INCREASED
     Route: 048
  3. SIMVASTATIN. [Suspect]
     Active Substance: SIMVASTATIN
     Route: 048
     Dates: start: 201411
  4. RAMIPRIL. [Concomitant]
     Active Substance: RAMIPRIL

REACTIONS (6)
  - Palpitations [Recovering/Resolving]
  - Mood altered [Recovering/Resolving]
  - Neck pain [Recovering/Resolving]
  - Libido disorder [Recovering/Resolving]
  - Glucose tolerance impaired [Recovering/Resolving]
  - Sexual dysfunction [Recovering/Resolving]
